FAERS Safety Report 23029833 (Version 1)
Quarter: 2023Q4

REPORT INFORMATION
  Report Type: Spontaneous
  Country: CA (occurrence: CA)
  Receive Date: 20231004
  Receipt Date: 20231004
  Transmission Date: 20240109
  Serious: Yes (Hospitalization, Other)
  Sender: FDA-Public Use
  Company Number: CA-BAXTER-2023BAX026196

PATIENT
  Age: 77 Year
  Sex: Female
  Weight: 70.5 kg

DRUGS (25)
  1. DIANEAL [Suspect]
     Active Substance: CALCIUM CHLORIDE\DEXTROSE\MAGNESIUM CHLORIDE\SODIUM CHLORIDE\SODIUM LACTATE
     Route: 033
  2. TYLENOL [Concomitant]
     Active Substance: ACETAMINOPHEN
     Dosage: 2 TABLET (S) EVERY 4 HOURS AS NEEDED
     Route: 048
  3. TYLENOL [Concomitant]
     Active Substance: ACETAMINOPHEN
     Dosage: 2 TABLET (S) EVERY 4 HOURS AS NEEDED
     Route: 048
  4. ALLOPURINOL [Concomitant]
     Active Substance: ALLOPURINOL
     Dosage: 100 MG ONCE DAILY
     Route: 048
  5. ALLOPURINOL [Concomitant]
     Active Substance: ALLOPURINOL
     Dosage: 100 MG ONCE DAILY
     Route: 048
  6. BETAMETHASONE [Concomitant]
     Active Substance: BETAMETHASONE
     Dosage: 1 APPLICATION AS NEEDED
     Route: 061
  7. CALCIUM CARBONATE [Concomitant]
     Active Substance: CALCIUM CARBONATE
     Dosage: UNK
     Route: 048
  8. CALCIUM CARBONATE [Concomitant]
     Active Substance: CALCIUM CARBONATE
     Dosage: 1-2 TABLET(S) AS DIRECTED BY PHYSICIAN, 1 TABLET WITH SUPPER AND 2 TABLETS AT BEDTIME EVERY OTHER DA
     Route: 048
  9. DIGOXIN [Concomitant]
     Active Substance: DIGOXIN
     Dosage: 0.0625 MG EVERY OTHER DAY
     Route: 048
  10. FISH OIL [Concomitant]
     Active Substance: FISH OIL
     Dosage: 1400 MG TWICE DAILY
     Route: 048
  11. Iron isomaltoside [Concomitant]
     Dosage: UNK
     Route: 065
  12. Iron isomaltoside [Concomitant]
     Dosage: 1000 MG, IN 100 ML NORMAL SALINE (NS)  X 1 DOSE
     Route: 042
     Dates: start: 20230822, end: 20230922
  13. LACTULOSE [Concomitant]
     Active Substance: LACTULOSE
     Dosage: 15-30 ML(S) AS NEEDED
     Route: 048
  14. LACTULOSE [Concomitant]
     Active Substance: LACTULOSE
     Dosage: 15-30 ML(S) AS NEEDED
     Route: 048
  15. METOPROLOL TARTRATE [Concomitant]
     Active Substance: METOPROLOL TARTRATE
     Dosage: 25 MG TWICE DAILY
     Route: 048
  16. METOPROLOL TARTRATE [Concomitant]
     Active Substance: METOPROLOL TARTRATE
     Dosage: 25 MG TWICE DAILY
     Route: 048
  17. MUPIROCIN [Concomitant]
     Active Substance: MUPIROCIN
     Dosage: 1 APPLICATION AS DIRECTED BY PHYSICIAN
     Route: 061
  18. MUPIROCIN [Concomitant]
     Active Substance: MUPIROCIN
     Dosage: 1 APPLICATION AS DIRECTED BY PHYSICIAN
     Route: 061
  19. POTASSIUM CHLORIDE [Concomitant]
     Active Substance: POTASSIUM CHLORIDE
     Dosage: 8 MILLI EQUIVALENT (MEQ) (600MG), 2 TABLET(S) ONCE DAILY
     Route: 048
  20. POTASSIUM CHLORIDE [Concomitant]
     Active Substance: POTASSIUM CHLORIDE
     Dosage: 8 MILLI EQUIVALENT (MEQ) (600MG), 2 TABLET(S) ONCE DAILY
     Route: 048
  21. VITAMIN B COMPLEX [Concomitant]
     Active Substance: CYANOCOBALAMIN\DEXPANTHENOL\NIACINAMIDE\PYRIDOXINE HYDROCHLORIDE\RIBOFLAVIN 5^-PHOSPHATE SODIUM\THIA
     Dosage: 1 TABLET(S) ONCE DAILY
     Route: 048
  22. VITAMIN B COMPLEX [Concomitant]
     Active Substance: CYANOCOBALAMIN\DEXPANTHENOL\NIACINAMIDE\PYRIDOXINE HYDROCHLORIDE\RIBOFLAVIN 5^-PHOSPHATE SODIUM\THIA
     Dosage: 1 TABLET(S) ONCE DAILY
     Route: 048
  23. VITAMIN E [Concomitant]
     Active Substance: .ALPHA.-TOCOPHEROL
     Dosage: 400 UNIT(S) ONCE DAILY
     Route: 048
  24. COUMADIN [Concomitant]
     Active Substance: WARFARIN SODIUM
     Indication: Prophylaxis
     Dosage: 1 DOSE ONCE DAILY
     Route: 048
  25. COUMADIN [Concomitant]
     Active Substance: WARFARIN SODIUM
     Indication: Thrombosis prophylaxis
     Dosage: 1 DOSE ONCE DAILY
     Route: 048

REACTIONS (18)
  - Deep vein thrombosis [Unknown]
  - Atrial fibrillation [Unknown]
  - Fatigue [Unknown]
  - Dyspnoea exertional [Unknown]
  - Exercise tolerance decreased [Unknown]
  - Mitral valve incompetence [Unknown]
  - Ascites [Unknown]
  - Aortic stenosis [Unknown]
  - Escherichia peritonitis [Recovered/Resolved]
  - Peritoneal cloudy effluent [Recovered/Resolved]
  - Drug intolerance [Unknown]
  - Anticoagulation drug level below therapeutic [Unknown]
  - Pleural effusion [Unknown]
  - Atelectasis [Unknown]
  - Diverticulum intestinal [Unknown]
  - Illness [Unknown]
  - Oedema peripheral [Unknown]
  - Recalled product administered [Unknown]

NARRATIVE: CASE EVENT DATE: 20230605
